FAERS Safety Report 20590621 (Version 1)
Quarter: 2022Q1

REPORT INFORMATION
  Report Type: Spontaneous
  Country: CA (occurrence: None)
  Receive Date: 20220314
  Receipt Date: 20220314
  Transmission Date: 20220423
  Serious: Yes (Other)
  Sender: FDA-Public Use
  Company Number: CA-FRESENIUS KABI-FK202202915

PATIENT
  Age: 24 Year
  Sex: Male

DRUGS (1)
  1. KETOROLAC TROMETHAMINE [Suspect]
     Active Substance: KETOROLAC TROMETHAMINE
     Indication: Product used for unknown indication
     Route: 042

REACTIONS (5)
  - Lacrimation increased [Unknown]
  - Petechiae [Unknown]
  - Chest discomfort [Unknown]
  - Dyspnoea [Unknown]
  - Eye swelling [Unknown]
